FAERS Safety Report 15532465 (Version 2)
Quarter: 2020Q1

REPORT INFORMATION
  Report Type: Spontaneous
  Country: CA (occurrence: CA)
  Receive Date: 20181019
  Receipt Date: 20200326
  Transmission Date: 20200409
  Serious: Yes (Other)
  Sender: FDA-Public Use
  Company Number: CA-GLAXOSMITHKLINE-CA2018189015

PATIENT
  Age: 38 Year
  Sex: Female
  Weight: 70 kg

DRUGS (3)
  1. NICOTINE. [Suspect]
     Active Substance: NICOTINE
     Indication: SMOKING CESSATION THERAPY
     Dosage: APPROXIMATELY 5 PIECES PER DAY
     Route: 048
     Dates: start: 20120928, end: 20121004
  2. NICODERM CQ [Concomitant]
     Active Substance: NICOTINE
     Indication: PRODUCT USED FOR UNKNOWN INDICATION
     Dosage: 14 MG/24HRS SKIN PATCH: 1 PATCH PER DAY X 6 WEEKS
     Route: 065
     Dates: start: 20120928
  3. NEXIUM [Concomitant]
     Active Substance: ESOMEPRAZOLE MAGNESIUM
     Indication: PRODUCT USED FOR UNKNOWN INDICATION
     Dosage: 40 MG 1 TABLET/DAY AS PRN
     Route: 065
     Dates: start: 20120801

REACTIONS (1)
  - Oral disorder [Recovered/Resolved]
